FAERS Safety Report 6315665-7 (Version None)
Quarter: 2009Q3

REPORT INFORMATION
  Report Type: 
  Country: None (occurrence: None)
  Receive Date: 20090819
  Receipt Date: 20090811
  Transmission Date: 20100115
  Serious: Yes (Hospitalization)
  Sender: FDA-Public Use
  Company Number: SE-BAXTER-2009BH012830

PATIENT
  Age: 40 Year
  Sex: Female

DRUGS (3)
  1. ENDOXAN BAXTER [Suspect]
     Indication: VASCULITIS
     Route: 048
     Dates: start: 20030523, end: 20040401
  2. ENDOXAN BAXTER [Suspect]
     Indication: MONONEURITIS
     Route: 048
     Dates: start: 20030523, end: 20040401
  3. PREDNISOLONE [Concomitant]
     Indication: DRUG USE FOR UNKNOWN INDICATION
     Route: 048

REACTIONS (1)
  - PANCREATITIS ACUTE [None]
